FAERS Safety Report 14759288 (Version 2)
Quarter: 2018Q2

REPORT INFORMATION
  Report Type: Spontaneous
  Country: IT (occurrence: IT)
  Receive Date: 20180413
  Receipt Date: 20180607
  Transmission Date: 20180711
  Serious: Yes (Hospitalization, Other)
  Sender: FDA-Public Use
  Company Number: IT-PFIZER INC-2018147253

PATIENT
  Sex: Male
  Weight: 105 kg

DRUGS (6)
  1. LANREOTIDE AUTOGEL [Suspect]
     Active Substance: LANREOTIDE
     Dosage: UNK FOR 1 YEAR
     Dates: start: 201610
  2. SOMAVERT [Suspect]
     Active Substance: PEGVISOMANT
     Indication: ACROMEGALY
     Dosage: 15 MG, ONCE A DAY
     Dates: start: 20060629
  3. SOMAVERT [Suspect]
     Active Substance: PEGVISOMANT
     Dosage: 20 UNK, UNK
     Route: 058
     Dates: start: 20060629
  4. LANREOTIDE AUTOGEL [Suspect]
     Active Substance: LANREOTIDE
     Dosage: UNK
     Route: 065
     Dates: start: 200505, end: 200606
  5. IPSTYL [Suspect]
     Active Substance: LANREOTIDE ACETATE
     Dosage: 120 MG, EVERY 3 WEEKS
     Route: 065
     Dates: start: 200505, end: 200606
  6. IPSTYL [Suspect]
     Active Substance: LANREOTIDE ACETATE
     Dosage: 120 MG, EVERY 3 WEEKS
     Route: 065
     Dates: start: 201610, end: 201702

REACTIONS (5)
  - Cardiomyopathy [Not Recovered/Not Resolved]
  - Inappropriate schedule of drug administration [Unknown]
  - Thyroid stimulating hormone deficiency [Not Recovered/Not Resolved]
  - Cholelithiasis [Unknown]
  - Cholecystitis acute [Recovered/Resolved]

NARRATIVE: CASE EVENT DATE: 2005
